FAERS Safety Report 10625319 (Version 1)
Quarter: 2014Q4

REPORT INFORMATION
  Report Type: Spontaneous
  Country: US (occurrence: None)
  Receive Date: 20141201
  Receipt Date: 20141201
  Transmission Date: 20150529
  Serious: Yes (Other)
  Sender: FDA-Public Use
  Company Number: PL-AE14-002789

PATIENT
  Age: 05 Year
  Sex: Female

DRUGS (1)
  1. CLEAR EYES REDNESS RELIEF [Suspect]
     Active Substance: GLYCERIN\NAPHAZOLINE HYDROCHLORIDE
     Indication: OCULAR HYPERAEMIA
     Route: 047
     Dates: start: 20141106

REACTIONS (4)
  - Eye swelling [None]
  - Eye burns [None]
  - Chemical burns of eye [None]
  - Ocular hyperaemia [None]

NARRATIVE: CASE EVENT DATE: 20141106
